FAERS Safety Report 8835781 (Version 3)
Quarter: 2012Q4

REPORT INFORMATION
  Report Type: 
  Country: US (occurrence: US)
  Receive Date: 20121011
  Receipt Date: 20121226
  Transmission Date: 20130627
  Serious: Yes (Hospitalization)
  Sender: FDA-Public Use
  Company Number: US-BAYER-2012-104580

PATIENT
  Age: 32 Year
  Sex: Female
  Weight: 77 kg

DRUGS (3)
  1. MIRENA [Suspect]
     Indication: BLEEDING MENSTRUAL HEAVY
     Dosage: UNK
     Route: 015
     Dates: start: 20111110, end: 20121003
  2. MIRENA [Suspect]
     Indication: PELVIC PAIN
  3. MIRENA [Suspect]
     Indication: CRAMP IN LOWER ABDOMEN

REACTIONS (4)
  - Pulmonary embolism [Recovering/Resolving]
  - Myocardial infarction [Recovering/Resolving]
  - Deep vein thrombosis [Recovering/Resolving]
  - Thrombosis [Recovering/Resolving]
